FAERS Safety Report 7247250-7 (Version None)
Quarter: 2011Q1

REPORT INFORMATION
  Report Type: 
  Country: None (occurrence: None)
  Receive Date: 20110127
  Receipt Date: 20101217
  Transmission Date: 20110831
  Serious: Yes (Other)
  Sender: FDA-Public Use
  Company Number: US-BAYER-2010-006038

PATIENT
  Sex: Male
  Weight: 77 kg

DRUGS (5)
  1. HYDROCHLOROTHIAZIDE [Concomitant]
  2. LABETALOL HCL [Concomitant]
  3. FOSINOPRIL SODIUM [Concomitant]
  4. ALEVE [Suspect]
     Indication: BACK PAIN
     Dosage: 220 MG, BID
     Dates: start: 20101001, end: 20100101
  5. AMLODIPINE [Concomitant]

REACTIONS (4)
  - LIVER DISORDER [None]
  - BREAST TENDERNESS [None]
  - NIPPLE PAIN [None]
  - BREAST PAIN [None]
